FAERS Safety Report 7991020-9 (Version None)
Quarter: 2011Q4

REPORT INFORMATION
  Report Type: 
  Country: None (occurrence: None)
  Receive Date: 20111219
  Receipt Date: 20111208
  Transmission Date: 20120403
  Serious: Yes (Other)
  Sender: FDA-Public Use
  Company Number: JP-BAYER-2011-085440

PATIENT
  Age: 59 Year
  Sex: Female
  Weight: 68 kg

DRUGS (3)
  1. MUCODYNE [Concomitant]
     Indication: BRONCHOPNEUMONIA
     Dosage: DAILY DOSE 1500 MG
     Route: 048
     Dates: start: 20110910, end: 20110910
  2. AVELOX [Suspect]
     Indication: BRONCHOPNEUMONIA
     Dosage: 400 MG, QD
     Route: 048
     Dates: start: 20110910, end: 20110910
  3. SOLANTAL [Concomitant]
     Indication: BRONCHOPNEUMONIA
     Dosage: DAILY DOSE 300 MG
     Route: 048
     Dates: start: 20110910, end: 20110910

REACTIONS (5)
  - SYNCOPE [None]
  - DRUG ERUPTION [None]
  - ERYTHEMA [None]
  - RASH [None]
  - PALLOR [None]
